FAERS Safety Report 7686505-9 (Version None)
Quarter: 2011Q3

REPORT INFORMATION
  Report Type: 
  Country: None (occurrence: None)
  Receive Date: 20110816
  Receipt Date: 20110816
  Transmission Date: 20111222
  Serious: No
  Sender: FDA-Public Use
  Company Number: US-JNJFOC-20110802719

PATIENT
  Sex: Female
  Weight: 54.43 kg

DRUGS (1)
  1. INVEGA SUSTENNA [Suspect]
     Indication: SCHIZOPHRENIA
     Route: 030
     Dates: start: 20100101

REACTIONS (3)
  - AGGRESSION [None]
  - PSYCHOMOTOR HYPERACTIVITY [None]
  - DEPRESSION [None]
